FAERS Safety Report 7194392-0 (Version None)
Quarter: 2010Q4

REPORT INFORMATION
  Report Type: 
  Country: None (occurrence: None)
  Receive Date: 20101223
  Receipt Date: 20101221
  Transmission Date: 20110411
  Serious: Yes (Hospitalization)
  Sender: FDA-Public Use
  Company Number: KR-ELI_LILLY_AND_COMPANY-KR201012002811

PATIENT
  Age: 63 Year
  Sex: Male

DRUGS (2)
  1. HUMALOG MIX 75/25 [Suspect]
     Indication: DIABETES MELLITUS
     Dosage: 26U MORNING, 18U EVENING
     Dates: start: 20101117
  2. HUMALOG MIX 75/25 [Suspect]
     Dosage: 26U MORNING, 18U EVENING
     Dates: start: 20101117

REACTIONS (3)
  - BACK PAIN [None]
  - GAIT DISTURBANCE [None]
  - HYPOAESTHESIA [None]
